FAERS Safety Report 7568382-X (Version None)
Quarter: 2011Q2

REPORT INFORMATION
  Report Type: 
  Country: None (occurrence: None)
  Receive Date: 20110623
  Receipt Date: 20110613
  Transmission Date: 20111010
  Serious: Yes (Hospitalization)
  Sender: FDA-Public Use
  Company Number: B0722956A

PATIENT
  Sex: Female

DRUGS (7)
  1. PRIMOBOLAN-DEPOT INJ [Concomitant]
     Indication: IDIOPATHIC THROMBOCYTOPENIC PURPURA
     Dosage: 15MG PER DAY
     Route: 048
  2. TRANEXAMIC ACID [Concomitant]
     Indication: EPISTAXIS
     Dosage: 1500MG PER DAY
     Route: 048
  3. PROMACTA [Suspect]
     Indication: IDIOPATHIC THROMBOCYTOPENIC PURPURA
     Route: 048
     Dates: start: 20110314, end: 20110510
  4. TIZANIDINE HYDROCHLORIDE [Concomitant]
     Indication: MUSCULOSKELETAL STIFFNESS
     Dosage: 2MG PER DAY
     Route: 048
     Dates: end: 20110608
  5. FERROUS CITRATE [Concomitant]
     Indication: IRON DEFICIENCY
     Dosage: 100MG PER DAY
     Route: 048
     Dates: end: 20110608
  6. FAMOTIDINE [Concomitant]
     Indication: PROPHYLAXIS
     Dosage: 20MG PER DAY
     Route: 048
  7. UNKNOWN [Concomitant]
     Indication: EPISTAXIS
     Dosage: 90MG PER DAY
     Route: 048

REACTIONS (5)
  - ANAEMIA [None]
  - HAEMORRHAGE SUBCUTANEOUS [None]
  - MARROW HYPERPLASIA [None]
  - THROMBOCYTOPENIA [None]
  - MALAISE [None]
